FAERS Safety Report 6474205-2 (Version None)
Quarter: 2009Q4

REPORT INFORMATION
  Report Type: 
  Country: None (occurrence: None)
  Receive Date: 20091204
  Receipt Date: 20091123
  Transmission Date: 20100525
  Serious: Yes (Other)
  Sender: FDA-Public Use
  Company Number: US-PFIZER INC-2009292381

PATIENT
  Sex: Male
  Weight: 126.98 kg

DRUGS (1)
  1. VIAGRA [Suspect]
     Indication: AGITATION
     Dosage: FREQUENCY: AS NEEDED,
     Route: 048
     Dates: start: 20081001

REACTIONS (3)
  - ERECTION INCREASED [None]
  - INTENTIONAL DRUG MISUSE [None]
  - TESTICULAR DISORDER [None]
